FAERS Safety Report 4566367-9 (Version None)
Quarter: 2005Q1

REPORT INFORMATION
  Report Type: 
  Country: None (occurrence: None)
  Receive Date: 20050126
  Receipt Date: 20050126
  Transmission Date: 20050727
  Serious: Yes (Other)
  Sender: FDA-Public Use
  Company Number: None

PATIENT
  Age: 45 Year
  Sex: Male
  Weight: 78 kg

DRUGS (11)
  1. BUPROPION [Suspect]
  2. GABAPENTIN [Concomitant]
  3. DIVALPROEX EC (DELAYED RELEASE) [Concomitant]
  4. FLUOXETINE HCL [Concomitant]
  5. HYDROMORPHONE HCL [Concomitant]
  6. MORPHINE [Concomitant]
  7. RANITIDINE HCL [Concomitant]
  8. BUPROPION HCL [Concomitant]
  9. VITAMIN B COMPLEX/ VITAMIN C CAP [Concomitant]
  10. PRAZOSIN HCL [Concomitant]
  11. CAPSAICIN [Concomitant]

REACTIONS (2)
  - AGITATION [None]
  - IRRITABILITY [None]
